FAERS Safety Report 8281127 (Version 12)
Quarter: 2015Q3

REPORT INFORMATION
  Report Type: Report from Study
  Country: FR (occurrence: FR)
  Receive Date: 20111209
  Receipt Date: 20150731
  Transmission Date: 20151125
  Serious: Yes (Death, Hospitalization, Other)
  Sender: FDA-Public Use
  Company Number: FR-BIOGENIDEC-2011BI045840

PATIENT
  Age: 40 Year
  Sex: Female
  Weight: 56 kg

DRUGS (6)
  1. TYSABRI [Suspect]
     Active Substance: NATALIZUMAB
     Indication: MULTIPLE SCLEROSIS
     Route: 042
     Dates: start: 20070620, end: 20110317
  2. MYOLASTAN [Concomitant]
     Active Substance: TETRAZEPAM
     Indication: PAIN
     Dates: start: 2009
  3. CRESTOR [Concomitant]
     Active Substance: ROSUVASTATIN CALCIUM
     Indication: HYPERCHOLESTEROLAEMIA
     Dates: start: 2011
  4. SEROPLEX [Concomitant]
     Active Substance: ESCITALOPRAM OXALATE
     Indication: SEDATIVE THERAPY
     Dates: start: 201009
  5. DITROPAN [Concomitant]
     Active Substance: OXYBUTYNIN CHLORIDE
     Indication: URINARY TRACT DISORDER
     Dates: start: 2009
  6. SOLU-MEDROL [Concomitant]
     Active Substance: METHYLPREDNISOLONE SODIUM SUCCINATE
     Dates: start: 2011

REACTIONS (1)
  - Lung adenocarcinoma [Fatal]

NARRATIVE: CASE EVENT DATE: 20110310
